FAERS Safety Report 7427743-X (Version None)
Quarter: 2011Q2

REPORT INFORMATION
  Report Type: 
  Country: None (occurrence: None)
  Receive Date: 20110421
  Receipt Date: 20110413
  Transmission Date: 20111010
  Serious: Yes (Death)
  Sender: FDA-Public Use
  Company Number: US-ELI_LILLY_AND_COMPANY-US201006007055

PATIENT
  Age: 68 Year
  Sex: Female

DRUGS (16)
  1. CYMBALTA [Suspect]
     Dosage: 30 MG, EACH EVENING
     Dates: start: 20080506, end: 20080724
  2. PRAZOSIN HCL [Concomitant]
     Dosage: 10 MG, EACH MORNING
  3. CYMBALTA [Suspect]
     Dosage: 60 MG, QD
     Dates: start: 20100617
  4. KLONOPIN [Concomitant]
     Dosage: 1 MG, OTHER
  5. PRAZOSIN HCL [Concomitant]
     Dosage: 15 MG, EACH EVENING
  6. CYMBALTA [Suspect]
     Indication: DEPRESSION
     Dosage: 30 MG, QD
     Dates: start: 20080311
  7. PRAZOSIN HCL [Concomitant]
     Dosage: 15 MG, EACH MORNING
  8. CYMBALTA [Suspect]
     Dosage: 60 MG, BID
     Dates: start: 20100128, end: 20100617
  9. CYMBALTA [Suspect]
     Dosage: 60 MG, DAILY (1/D)
     Dates: start: 20080506, end: 20100128
  10. NALTREXONE HYDROCHLORIDE [Concomitant]
     Dosage: 75 MG, EACH MORNING
  11. CYMBALTA [Suspect]
     Dosage: 30 MG, BID
     Dates: start: 20080327
  12. CYMBALTA [Suspect]
     Dosage: 180 MG, QD
     Dates: start: 20080513
  13. CYMBALTA [Suspect]
     Dosage: 30 MG, QOD
     Dates: start: 20080909, end: 20081106
  14. PRAZOSIN HCL [Concomitant]
     Dosage: 10 MG, EACH EVENING
  15. PRISTIQ [Concomitant]
     Indication: DEPRESSION
     Dosage: 50 MG, QOD
     Dates: start: 20100601
  16. NALTREXONE HYDROCHLORIDE [Concomitant]
     Dosage: 100 MG, EACH MORNING

REACTIONS (9)
  - COMPLETED SUICIDE [None]
  - DEPRESSION [None]
  - DRUG INEFFECTIVE [None]
  - FALL [None]
  - SKULL FRACTURE [None]
  - ACCIDENTAL OVERDOSE [None]
  - OFF LABEL USE [None]
  - LETHARGY [None]
  - DRUG DOSE OMISSION [None]
